FAERS Safety Report 6784985-4 (Version None)
Quarter: 2010Q2

REPORT INFORMATION
  Report Type: 
  Country: None (occurrence: None)
  Receive Date: 20100622
  Receipt Date: 20100616
  Transmission Date: 20101027
  Serious: Yes (Death)
  Sender: FDA-Public Use
  Company Number: AU-ROXANE LABORATORIES, INC.-2010-DE-03329GD

PATIENT
  Age: 37 Year
  Sex: Male

DRUGS (6)
  1. IBUPROFEN [Suspect]
  2. CODEINE SULFATE [Suspect]
  3. TRAMADOL [Suspect]
  4. METHADONE [Suspect]
  5. DIAZEPAM [Suspect]
  6. NAPROXEN [Suspect]

REACTIONS (2)
  - DRUG TOXICITY [None]
  - SEROTONIN SYNDROME [None]
